FAERS Safety Report 8995598 (Version 1)
Quarter: 2013Q1

REPORT INFORMATION
  Report Type: Spontaneous
  Country: US (occurrence: US)
  Receive Date: 20130103
  Receipt Date: 20130103
  Transmission Date: 20140127
  Serious: No
  Sender: FDA-Public Use
  Company Number: US-ABBOTT-12P-163-0948143-00

PATIENT
  Age: 67 Year
  Sex: Female
  Weight: 81.72 kg

DRUGS (4)
  1. SYNTHROID [Suspect]
     Indication: THYROIDECTOMY
     Dates: start: 2003, end: 2003
  2. SYNTHROID [Suspect]
     Dosage: 3 TIMES, 1 IN 4 DAYS
     Dates: start: 2003
  3. METFORMIN [Concomitant]
     Indication: DIABETES MELLITUS
  4. GLYBURIDE [Concomitant]
     Indication: DIABETES MELLITUS

REACTIONS (2)
  - Hyperhidrosis [Not Recovered/Not Resolved]
  - Alopecia [Recovered/Resolved]
